FAERS Safety Report 8849868 (Version 1)
Quarter: 2012Q4

REPORT INFORMATION
  Report Type: 
  Country: BR (occurrence: BR)
  Receive Date: 20121019
  Receipt Date: 20121019
  Transmission Date: 20130627
  Serious: Yes (Hospitalization, Other)
  Sender: FDA-Public Use
  Company Number: BR-BAYER-2012-096328

PATIENT
  Age: 67 Year
  Sex: Female

DRUGS (12)
  1. XARELTO [Suspect]
     Indication: CEREBROVASCULAR ACCIDENT PROPHYLAXIS
     Dosage: 20 mg, QD
     Route: 048
     Dates: start: 201207, end: 201209
  2. XARELTO [Interacting]
     Indication: ATRIAL FIBRILLATION
     Dosage: UNK
     Dates: start: 20120928
  3. CLOPIDOGREL [Interacting]
     Dosage: UNK
     Dates: end: 201209
  4. ACETYLSALICYLIC ACID (} 100 MG) [Interacting]
  5. MAREVAN [Concomitant]
     Indication: CEREBROVASCULAR ACCIDENT PROPHYLAXIS
     Dosage: UNK
     Route: 048
     Dates: end: 201207
  6. MAREVAN [Concomitant]
     Indication: ATRIAL FIBRILLATION
  7. HEPARIN [Concomitant]
     Dosage: UNK
     Dates: start: 201209, end: 201209
  8. LOSARTAN [Concomitant]
  9. SIMVASTATIN [Concomitant]
  10. METFORMIN [Concomitant]
  11. FUROSEMIDE [Concomitant]
  12. PURAN T4 [Concomitant]

REACTIONS (5)
  - Haematuria [Recovered/Resolved]
  - Cholecystitis acute [Recovered/Resolved]
  - Procedural site reaction [Recovered/Resolved]
  - Haemorrhage [Recovered/Resolved]
  - Dizziness [None]
